FAERS Safety Report 24618259 (Version 1)
Quarter: 2024Q4

REPORT INFORMATION
  Report Type: Spontaneous
  Country: RO (occurrence: RO)
  Receive Date: 20241114
  Receipt Date: 20241114
  Transmission Date: 20250114
  Serious: No
  Sender: ASTELLAS
  Company Number: RO-ASTELLAS-2024-AER-017624

PATIENT
  Age: 28 Year
  Sex: Male

DRUGS (8)
  1. SOLIFENACIN [Suspect]
     Active Substance: SOLIFENACIN
     Indication: Hypertonic bladder
     Route: 065
  2. SOLIFENACIN [Suspect]
     Active Substance: SOLIFENACIN
     Indication: Hypertonic bladder
  3. TAMSULOSIN [Suspect]
     Active Substance: TAMSULOSIN
     Indication: Hypertonic bladder
     Route: 065
  4. TAMSULOSIN [Suspect]
     Active Substance: TAMSULOSIN
     Indication: Hypertonic bladder
  5. TROSPIUM [Concomitant]
     Active Substance: TROSPIUM
     Indication: Hypertonic bladder
     Route: 065
  6. TROSPIUM [Concomitant]
     Active Substance: TROSPIUM
     Indication: Hypertonic bladder
  7. TOLTERODINE [Concomitant]
     Active Substance: TOLTERODINE
     Indication: Hypertonic bladder
     Route: 065
  8. TOLTERODINE [Concomitant]
     Active Substance: TOLTERODINE
     Indication: Hypertonic bladder

REACTIONS (3)
  - Drug ineffective [Unknown]
  - Drug ineffective for unapproved indication [Unknown]
  - Off label use [Unknown]
